FAERS Safety Report 15689047 (Version 1)
Quarter: 2018Q4

REPORT INFORMATION
  Report Type: Spontaneous
  Country: JP (occurrence: JP)
  Receive Date: 20181205
  Receipt Date: 20181205
  Transmission Date: 20190205
  Serious: Yes (Life-Threatening)
  Sender: FDA-Public Use
  Company Number: JP-MITSUBISHI TANABE PHARMA CORPORATION-MTPC2018-0029948

PATIENT
  Age: 75 Year
  Sex: Female
  Weight: 46 kg

DRUGS (6)
  1. RADICUT [Suspect]
     Active Substance: EDARAVONE
     Route: 041
     Dates: start: 20180312, end: 20180313
  2. AMLODIPINE [Concomitant]
     Active Substance: AMLODIPINE BESYLATE
     Route: 048
     Dates: start: 20180313
  3. SLONNON HI [Suspect]
     Active Substance: ARGATROBAN
     Route: 041
     Dates: start: 20180314, end: 20180314
  4. BAYASPIRIN [Suspect]
     Active Substance: ASPIRIN
     Indication: CEREBRAL INFARCTION
     Route: 048
     Dates: start: 20180315, end: 20180315
  5. SLONNON HI [Suspect]
     Active Substance: ARGATROBAN
     Indication: CEREBRAL INFARCTION
     Route: 041
     Dates: start: 20180312, end: 20180313
  6. TOCOPHEROL NICOTINATE [Concomitant]
     Active Substance: TOCOPHERYL NICOTINATE, D-.ALPHA.
     Route: 048
     Dates: start: 20180313

REACTIONS (1)
  - Subarachnoid haemorrhage [Recovered/Resolved with Sequelae]

NARRATIVE: CASE EVENT DATE: 20180316
